FAERS Safety Report 9999695 (Version 3)
Quarter: 2014Q4

REPORT INFORMATION
  Report Type: Spontaneous
  Country: LB (occurrence: LB)
  Receive Date: 20140312
  Receipt Date: 20141231
  Transmission Date: 20150529
  Serious: Yes (Other)
  Sender: FDA-Public Use
  Company Number: LB-JNJFOC-20140304112

PATIENT
  Age: 47 Year
  Sex: Male
  Weight: 84 kg

DRUGS (2)
  1. REMICADE [Suspect]
     Active Substance: INFLIXIMAB
     Indication: CROHN^S DISEASE
     Dosage: 4TH INFUSION
     Route: 042
     Dates: start: 201301, end: 201312
  2. PENTASA [Concomitant]
     Active Substance: MESALAMINE
     Route: 065
     Dates: start: 201301, end: 201311

REACTIONS (2)
  - Impaired healing [Unknown]
  - BK virus infection [Recovered/Resolved]

NARRATIVE: CASE EVENT DATE: 20131109
